FAERS Safety Report 19246411 (Version 1)
Quarter: 2021Q2

REPORT INFORMATION
  Report Type: Spontaneous
  Country: US (occurrence: US)
  Receive Date: 20210512
  Receipt Date: 20210512
  Transmission Date: 20210717
  Serious: Yes (Death, Hospitalization)
  Sender: FDA-Public Use
  Company Number: None

PATIENT
  Age: 34 Year
  Sex: Male
  Weight: 76.4 kg

DRUGS (8)
  1. ONCASPAR [Suspect]
     Active Substance: PEGASPARGASE
     Dates: end: 20161117
  2. METHOTREXATE. [Suspect]
     Active Substance: METHOTREXATE
     Dates: end: 20161129
  3. DAUNORUBICIN [Suspect]
     Active Substance: DAUNORUBICIN
     Dates: end: 20161019
  4. VINCRISTINE SULFATE. [Suspect]
     Active Substance: VINCRISTINE SULFATE
     Dates: end: 20161019
  5. DEXAMETHASONE. [Suspect]
     Active Substance: DEXAMETHASONE
     Dates: end: 20161019
  6. CYTARABINE. [Suspect]
     Active Substance: CYTARABINE
     Dates: end: 20161208
  7. MERCAPTOPURINE. [Suspect]
     Active Substance: MERCAPTOPURINE
     Dates: end: 20161117
  8. CYCLOPHOSPHAMIDE. [Suspect]
     Active Substance: CYCLOPHOSPHAMIDE
     Dates: end: 20161128

REACTIONS (10)
  - Asthenia [None]
  - Ascites [None]
  - Bradycardia [None]
  - Lactic acidosis [None]
  - Hypotension [None]
  - Febrile neutropenia [None]
  - Multiple organ dysfunction syndrome [None]
  - Vomiting [None]
  - Colitis [None]
  - Gastrointestinal ischaemia [None]

NARRATIVE: CASE EVENT DATE: 20161214
